FAERS Safety Report 6441425-2 (Version None)
Quarter: 2009Q4

REPORT INFORMATION
  Report Type: 
  Country: None (occurrence: None)
  Receive Date: 20091116
  Receipt Date: 20091110
  Transmission Date: 20100525
  Serious: Yes (Death, Other)
  Sender: FDA-Public Use
  Company Number: JP-BAYER-200913036BYL

PATIENT
  Age: 63 Year
  Sex: Female
  Weight: 46 kg

DRUGS (12)
  1. NEXAVAR [Suspect]
     Indication: RENAL CELL CARCINOMA
     Dosage: UNIT DOSE: 200 MG
     Route: 048
     Dates: start: 20081213, end: 20090506
  2. NEXAVAR [Suspect]
     Dosage: UNIT DOSE: 200 MG
     Route: 048
     Dates: start: 20090507, end: 20090730
  3. MORPHINE, DERIVATIVES AND PREPARATIONS [Suspect]
     Indication: DRUG USE FOR UNKNOWN INDICATION
     Route: 065
  4. ZOMETA [Concomitant]
     Route: 042
     Dates: start: 20090106, end: 20090106
  5. ZOMETA [Concomitant]
     Route: 042
     Dates: start: 20090203, end: 20090203
  6. DUROTEP [Concomitant]
     Dosage: ONCE PER 3DAYS
     Route: 062
     Dates: start: 20090124
  7. DUROTEP [Concomitant]
     Dosage: ONCE PER 3DAYS
     Route: 062
     Dates: start: 20090613, end: 20090812
  8. DUROTEP [Concomitant]
     Dosage: ONCE PER 3DAYS
     Route: 062
     Dates: start: 20090211, end: 20090610
  9. GASTER [Concomitant]
     Route: 042
     Dates: start: 20090124
  10. RHYTHMY [Concomitant]
     Route: 048
     Dates: start: 20090126
  11. DECADRON [Concomitant]
     Route: 048
     Dates: start: 20090502, end: 20090730
  12. NEOPAREN [Concomitant]
     Route: 042
     Dates: start: 20090508, end: 20090811

REACTIONS (11)
  - CYSTITIS [None]
  - DECREASED APPETITE [None]
  - DRY SKIN [None]
  - EATING DISORDER [None]
  - HYPOCALCAEMIA [None]
  - HYPOKALAEMIA [None]
  - NAUSEA [None]
  - PNEUMONIA [None]
  - RENAL CELL CARCINOMA [None]
  - STOMATITIS [None]
  - VOMITING [None]
